FAERS Safety Report 16952036 (Version 2)
Quarter: 2020Q1

REPORT INFORMATION
  Report Type: Spontaneous
  Country: US (occurrence: US)
  Receive Date: 20191023
  Receipt Date: 20200109
  Transmission Date: 20200409
  Serious: No
  Sender: FDA-Public Use
  Company Number: US-009507513-1909USA009689

PATIENT
  Age: 39 Year
  Sex: Female
  Weight: 95.69 kg

DRUGS (1)
  1. NEXPLANON [Suspect]
     Active Substance: ETONOGESTREL
     Indication: CONTRACEPTION
     Dosage: STRENGHT: 68 MILLIGRAM, 1 ROD EVERY 3 YEARS
     Route: 059
     Dates: start: 20180604, end: 20190930

REACTIONS (4)
  - Metrorrhagia [Recovered/Resolved]
  - Implant site pain [Unknown]
  - Device kink [Recovered/Resolved]
  - Device breakage [Recovered/Resolved]

NARRATIVE: CASE EVENT DATE: 20190921
